FAERS Safety Report 5960869-6 (Version None)
Quarter: 2008Q4

REPORT INFORMATION
  Report Type: 
  Country: None (occurrence: None)
  Receive Date: 20081118
  Receipt Date: 20081106
  Transmission Date: 20090506
  Serious: No
  Sender: FDA-Public Use
  Company Number: 2008-186409-NL

PATIENT
  Age: 31 Year
  Sex: Female

DRUGS (4)
  1. GANIRELIX ACETATE INJECTION [Suspect]
     Indication: BLOOD LUTEINISING HORMONE ABNORMAL
     Dosage: 0.25 MG, SUBCUTANEOUS
     Route: 058
     Dates: start: 20080518, end: 20080520
  2. GANIRELIX ACETATE INJECTION [Suspect]
     Indication: PROPHYLAXIS
     Dosage: 0.25 MG, SUBCUTANEOUS
     Route: 058
     Dates: start: 20080518, end: 20080520
  3. FOLLITROPIN BETA [Concomitant]
  4. CHORIONIC GONADTROPIN [Concomitant]

REACTIONS (1)
  - ECTOPIC PREGNANCY [None]
